FAERS Safety Report 5268447-1 (Version None)
Quarter: 2007Q1

REPORT INFORMATION
  Report Type: 
  Country: None (occurrence: None)
  Receive Date: 20070315
  Receipt Date: 20070315
  Transmission Date: 20070707
  Serious: No
  Sender: FDA-Public Use
  Company Number: None

PATIENT
  Sex: Male
  Weight: 85 kg

DRUGS (1)
  1. AMBIEN [Suspect]

REACTIONS (10)
  - ABNORMAL SLEEP-RELATED EVENT [None]
  - CHRONIC FATIGUE SYNDROME [None]
  - FEELING HOT [None]
  - INJURY [None]
  - MALAISE [None]
  - MEMORY IMPAIRMENT [None]
  - NERVOUS SYSTEM DISORDER [None]
  - NUCLEAR MAGNETIC RESONANCE IMAGING BRAIN ABNORMAL [None]
  - PNEUMONIA [None]
  - PYREXIA [None]
